FAERS Safety Report 14554046 (Version 1)
Quarter: 2018Q1

REPORT INFORMATION
  Report Type: Spontaneous
  Country: US (occurrence: US)
  Receive Date: 20180220
  Receipt Date: 20180220
  Transmission Date: 20180509
  Serious: No
  Sender: FDA-Public Use
  Company Number: US-PFIZER INC-2017296199

PATIENT
  Age: 65 Year
  Sex: Female
  Weight: 93 kg

DRUGS (5)
  1. ESCITALOPRAM OXALATE. [Concomitant]
     Active Substance: ESCITALOPRAM OXALATE
     Indication: NERVOUS SYSTEM DISORDER
     Dosage: 20 MG, 1X/DAY (20MG BY MOUTH ONCE AT NIGHT PILL)
     Route: 048
     Dates: start: 2010
  2. XELJANZ [Suspect]
     Active Substance: TOFACITINIB CITRATE
     Indication: RHEUMATOID ARTHRITIS
     Dosage: 5 MG, 2X/DAY (5MG PILL BY MOUTH IN THE MORNING AND NIGHT)
     Route: 048
     Dates: start: 2015
  3. XELJANZ [Suspect]
     Active Substance: TOFACITINIB CITRATE
     Dosage: 5 MG, UNK (QTY 180 / DAY SUPPLY 90)
  4. CELECOXIB. [Concomitant]
     Active Substance: CELECOXIB
     Indication: RHEUMATOID ARTHRITIS
     Dosage: 2 DF, 2X/DAY (ONE CAPSULE IN THE MORNING AND ONE CAPSULE AT NIGHT BY MOUTH)
     Route: 048
     Dates: start: 2015
  5. TYLENOL [Concomitant]
     Active Substance: ACETAMINOPHEN
     Indication: PAIN
     Dosage: 2 DF, AS NEEDED (2 TABLETS BY MOUTH EVERY 4 HOURS AS NEEDED)
     Route: 048
     Dates: start: 201706

REACTIONS (1)
  - Malaise [Unknown]
